FAERS Safety Report 4994140-6 (Version None)
Quarter: 2006Q1

REPORT INFORMATION
  Report Type: 
  Country: None (occurrence: None)
  Receive Date: 20060313
  Receipt Date: 20050309
  Transmission Date: 20060701
  Serious: Yes (Hospitalization, Other)
  Sender: FDA-Public Use
  Company Number: PHEH2005US02976

PATIENT
  Age: 45 Year
  Sex: Female
  Weight: 49.9 kg

DRUGS (2)
  1. TRILEPTAL [Suspect]
     Indication: EPILEPSY
     Dosage: 1200 MG QD ORAL
     Route: 048
     Dates: start: 20020101, end: 20050301
  2. GABITRIL [Concomitant]

REACTIONS (2)
  - HYPONATRAEMIA [None]
  - PSYCHIATRIC SYMPTOM [None]
